FAERS Safety Report 4303648-8 (Version None)
Quarter: 2004Q1

REPORT INFORMATION
  Report Type: 
  Country: None (occurrence: None)
  Receive Date: 20040223
  Receipt Date: 20040209
  Transmission Date: 20041129
  Serious: Yes (Other)
  Sender: FDA-Public Use
  Company Number: 2004008770

PATIENT
  Age: 50 Year
  Sex: Male
  Weight: 73.3 kg

DRUGS (5)
  1. LIPITOR [Suspect]
     Indication: HYPERLIPIDAEMIA
     Dosage: 10 MG (DAILY), ORAL
     Route: 048
     Dates: start: 20020503, end: 20040130
  2. AMLODIPINE [Concomitant]
  3. ATENOLOL [Concomitant]
  4. ACETYLSALICYLIC ACID SRT [Concomitant]
  5. ISOSORBIDE MONONITRATE [Concomitant]

REACTIONS (2)
  - ANGIONEUROTIC OEDEMA [None]
  - RASH [None]
